FAERS Safety Report 26133627 (Version 1)
Quarter: 2025Q4

REPORT INFORMATION
  Report Type: Spontaneous
  Country: EU (occurrence: EU)
  Receive Date: 20251209
  Receipt Date: 20251209
  Transmission Date: 20260117
  Serious: No
  Sender: ALKEM
  Company Number: EU-ALKEM LABORATORIES LIMITED-NL-ALKEM-2025-12018

PATIENT
  Age: 43 Year
  Sex: Female

DRUGS (4)
  1. VANCOMYCIN [Suspect]
     Active Substance: VANCOMYCIN
     Indication: Post procedural meningitis
     Dosage: UNK (SECOND LINE TREATMENT)
     Route: 037
  2. VANCOMYCIN [Suspect]
     Active Substance: VANCOMYCIN
     Indication: Meningitis staphylococcal
     Dosage: UNK (SECOND LINE TREATMENT)
     Route: 042
  3. LINEZOLID [Concomitant]
     Active Substance: LINEZOLID
     Indication: CNS ventriculitis
     Dosage: 600 MILLIGRAM, BID
     Route: 048
  4. LINEZOLID [Concomitant]
     Active Substance: LINEZOLID
     Dosage: 600 MILLIGRAM, BID
     Route: 042

REACTIONS (1)
  - Treatment failure [Unknown]
